FAERS Safety Report 5209163-1 (Version None)
Quarter: 2007Q1

REPORT INFORMATION
  Report Type: 
  Country: None (occurrence: None)
  Receive Date: 20070116
  Receipt Date: 20070109
  Transmission Date: 20070707
  Serious: Yes (Death)
  Sender: FDA-Public Use
  Company Number: JP-AVENTIS-200613703JP

PATIENT
  Age: 52 Year
  Sex: Male
  Weight: 55 kg

DRUGS (7)
  1. TAXOTERE [Suspect]
     Indication: HYPOPHARYNGEAL CANCER
     Route: 013
     Dates: start: 20060328, end: 20060328
  2. TAXOTERE [Suspect]
     Route: 013
     Dates: start: 20060420, end: 20060420
  3. CISPLATIN [Concomitant]
     Indication: HYPOPHARYNGEAL CANCER
     Route: 041
     Dates: start: 20060329, end: 20060329
  4. CISPLATIN [Concomitant]
     Route: 041
     Dates: start: 20060421, end: 20060421
  5. FLUOROURACIL [Concomitant]
     Indication: HYPOPHARYNGEAL CANCER
     Route: 041
     Dates: start: 20060329, end: 20060403
  6. FLUOROURACIL [Concomitant]
     Route: 041
     Dates: start: 20060421, end: 20060426
  7. RADIOTHERAPY [Concomitant]
     Indication: HYPOPHARYNGEAL CANCER
     Dosage: DOSE: 72GY/TOTAL
     Dates: start: 20060322, end: 20060519

REACTIONS (2)
  - ARTERIAL RUPTURE [None]
  - PHARYNGEAL NECROSIS [None]
